FAERS Safety Report 19381930 (Version 1)
Quarter: 2021Q2

REPORT INFORMATION
  Report Type: Spontaneous
  Country: FR (occurrence: FR)
  Receive Date: 20210607
  Receipt Date: 20210607
  Transmission Date: 20210717
  Serious: Yes (Hospitalization, Disabling, Other)
  Sender: FDA-Public Use
  Company Number: NVSC2021FR121959

PATIENT
  Sex: Female

DRUGS (1)
  1. OFLOXACIN. [Suspect]
     Active Substance: OFLOXACIN
     Indication: INFECTIOUS DISEASE CARRIER
     Dosage: 400 MG, BID
     Route: 065
     Dates: start: 20110722

REACTIONS (19)
  - Tendon disorder [Unknown]
  - Cauda equina syndrome [Unknown]
  - Sciatica [Unknown]
  - Back pain [Unknown]
  - Urinary incontinence [Unknown]
  - Bone pain [Unknown]
  - Pain [Unknown]
  - Pyelonephritis acute [Unknown]
  - Rotator cuff syndrome [Unknown]
  - Pyelonephritis [Unknown]
  - Paraparesis [Unknown]
  - Paraplegia [Unknown]
  - Tendonitis [Unknown]
  - Anal incontinence [Unknown]
  - Piriformis syndrome [Unknown]
  - Arthralgia [Unknown]
  - Sjogren^s syndrome [Unknown]
  - Staphylococcal infection [Unknown]
  - Hypersomnia [Unknown]

NARRATIVE: CASE EVENT DATE: 20121002
